FAERS Safety Report 16580337 (Version 1)
Quarter: 2019Q3

REPORT INFORMATION
  Report Type: Spontaneous
  Country: FR (occurrence: FR)
  Receive Date: 20190716
  Receipt Date: 20190716
  Transmission Date: 20191004
  Serious: Yes (Hospitalization)
  Sender: FDA-Public Use
  Company Number: FR-TEVA-2019-FR-1077408

PATIENT
  Age: 34 Year
  Sex: Female

DRUGS (9)
  1. LEVOTHYROX [Concomitant]
     Active Substance: LEVOTHYROXINE
  2. LEVETIRACETAM. [Concomitant]
     Active Substance: LEVETIRACETAM
  3. PROPRANOLOL ACCORD 40 MG, COMPRIM? PELLICUL? [Suspect]
     Active Substance: PROPRANOLOL HYDROCHLORIDE
     Dosage: 40MG
     Route: 048
     Dates: start: 20190620, end: 20190620
  4. LANSOYL [Concomitant]
     Active Substance: MINERAL OIL
  5. FUROSEMIDE ARROW 20 MG, COMPRIM? S?CABLE [Concomitant]
     Active Substance: FUROSEMIDE
  6. PREGABALINE MYLAN 50 MG, G?LULE [Suspect]
     Active Substance: PREGABALIN
     Dosage: 50MG
     Route: 048
     Dates: start: 20190620, end: 20190620
  7. DIAZEPAM TEVA 5 MG, COMPRIM? [Suspect]
     Active Substance: DIAZEPAM
     Dosage: 5MG
     Route: 048
     Dates: start: 20190620, end: 20190620
  8. MACROGOL 4000 MYLAN 10 G, POUDRE POUR SOLUTION BUVABLE EN SACHET-DOSE [Concomitant]
     Active Substance: POLYETHYLENE GLYCOL 4000
  9. QUETIAPINE MYLAN PHARMA LP 50 MG, COMPRIM? ? LIB?RATION PROLONG?E [Suspect]
     Active Substance: QUETIAPINE
     Dosage: 50MG
     Route: 048
     Dates: start: 20190620, end: 20190620

REACTIONS (4)
  - Pallor [Recovered/Resolved]
  - Malaise [Recovered/Resolved]
  - Hypotension [Recovered/Resolved]
  - Wrong patient received product [Recovered/Resolved]

NARRATIVE: CASE EVENT DATE: 20190620
